FAERS Safety Report 4539473-2 (Version None)
Quarter: 2004Q4

REPORT INFORMATION
  Report Type: 
  Country: None (occurrence: None)
  Receive Date: 20041228
  Receipt Date: 20041124
  Transmission Date: 20050328
  Serious: Yes (Hospitalization)
  Sender: FDA-Public Use
  Company Number: 200419142US

PATIENT
  Age: 77 Year
  Sex: Male

DRUGS (6)
  1. KETEK [Suspect]
     Indication: SINUSITIS
     Dates: start: 20041116, end: 20041118
  2. CRESTOR [Concomitant]
     Indication: HYPERLIPIDAEMIA
  3. CHLOR-TRIMETON [Concomitant]
     Indication: HYPERCHOLESTEROLAEMIA
  4. PROSCAR [Concomitant]
     Indication: BENIGN PROSTATIC HYPERPLASIA
  5. NASALCROM [Concomitant]
     Indication: HYPERSENSITIVITY
  6. OCUVITE [Concomitant]

REACTIONS (8)
  - DRUG INTERACTION [None]
  - HYPERHIDROSIS [None]
  - LOSS OF CONSCIOUSNESS [None]
  - MITRAL VALVE INCOMPETENCE [None]
  - MYOCARDIAL ISCHAEMIA [None]
  - SYNCOPE [None]
  - TRICUSPID VALVE INCOMPETENCE [None]
  - VENTRICULAR ARRHYTHMIA [None]
